FAERS Safety Report 20183227 (Version 1)
Quarter: 2021Q4

REPORT INFORMATION
  Report Type: Spontaneous
  Country: US (occurrence: US)
  Receive Date: 20211214
  Receipt Date: 20211214
  Transmission Date: 20220303
  Serious: No
  Sender: FDA-Public Use
  Company Number: US-ABBVIE-21K-163-3967674-00

PATIENT
  Sex: Male

DRUGS (2)
  1. IMBRUVICA [Suspect]
     Active Substance: IBRUTINIB
     Indication: Chronic lymphocytic leukaemia
     Route: 048
  2. UNSPECIFIED INGREDIENT [Concomitant]
     Active Substance: UNSPECIFIED INGREDIENT
     Indication: Product used for unknown indication

REACTIONS (10)
  - White blood cell count decreased [Unknown]
  - Burning sensation [Unknown]
  - Hypoaesthesia [Unknown]
  - Vomiting [Unknown]
  - Dizziness [Unknown]
  - Headache [Unknown]
  - Aggression [Unknown]
  - Crying [Unknown]
  - Confusional state [Unknown]
  - Feeling abnormal [Unknown]
